FAERS Safety Report 6955617-7 (Version None)
Quarter: 2010Q3

REPORT INFORMATION
  Report Type: 
  Country: None (occurrence: None)
  Receive Date: 20100830
  Receipt Date: 20100820
  Transmission Date: 20110219
  Serious: Yes (Other)
  Sender: FDA-Public Use
  Company Number: BR-PFIZER INC-2010105079

PATIENT
  Age: 45 Year
  Sex: Female
  Weight: 63 kg

DRUGS (3)
  1. DEPO-PROVERA [Suspect]
     Indication: CONTRACEPTION
     Dosage: 150 MG, SINGLE INJECTION
     Route: 030
     Dates: start: 20090101, end: 20090101
  2. DEPO-PROVERA [Suspect]
     Dosage: 150 MG, UNK
     Route: 030
     Dates: start: 20100301
  3. VITAMINS [Concomitant]
     Dosage: UNK
     Dates: end: 20100701

REACTIONS (7)
  - ABDOMINOPLASTY [None]
  - AMENORRHOEA [None]
  - ANAEMIA [None]
  - METRORRHAGIA [None]
  - NERVOUSNESS [None]
  - OBESITY SURGERY [None]
  - PELVIC PAIN [None]
